FAERS Safety Report 23884862 (Version 2)
Quarter: 2025Q1

REPORT INFORMATION
  Report Type: Report from Study
  Country: IT (occurrence: IT)
  Receive Date: 20240522
  Receipt Date: 20250304
  Transmission Date: 20250409
  Serious: Yes (Hospitalization)
  Sender: ROCHE
  Company Number: IT-ROCHE-3232163

PATIENT
  Age: 71 Year
  Sex: Male
  Weight: 67.0 kg

DRUGS (14)
  1. ATEZOLIZUMAB [Suspect]
     Active Substance: ATEZOLIZUMAB
     Indication: Non-small cell lung cancer
     Dosage: FORM STRENGTH: 60 MG / 1 ML?DOSE LAST STUDY DRUG ADMIN PRIOR AE AND SAE IS 1200 MG?START DATE OF MOS
     Route: 042
     Dates: start: 20221026
  2. PANTOPRAZOLE SODIUM [Concomitant]
     Active Substance: PANTOPRAZOLE SODIUM
     Dates: start: 2012
  3. PANTOPRAZOLE SODIUM [Concomitant]
     Active Substance: PANTOPRAZOLE SODIUM
  4. ACLIDINIUM BROMIDE [Concomitant]
     Active Substance: ACLIDINIUM BROMIDE
     Dates: start: 2013
  5. ACLIDINIUM BROMIDE [Concomitant]
     Active Substance: ACLIDINIUM BROMIDE
  6. INDACATEROL [Concomitant]
     Active Substance: INDACATEROL
     Dates: start: 2013
  7. INDACATEROL [Concomitant]
     Active Substance: INDACATEROL
  8. SOLUZIONE FISIOLOGICA 1000 ML [Concomitant]
     Indication: Adverse event
  9. DOCETAXEL [Concomitant]
     Active Substance: DOCETAXEL
     Dates: start: 20230301, end: 20230329
  10. LOPERAMIDE [Concomitant]
     Active Substance: LOPERAMIDE
     Indication: Adverse event
     Dates: start: 20221130, end: 20221202
  11. LOPERAMIDE [Concomitant]
     Active Substance: LOPERAMIDE
  12. METHYLPREDNISOLONE [Concomitant]
     Active Substance: METHYLPREDNISOLONE
     Dates: start: 20221130, end: 20221202
  13. CISPLATIN [Concomitant]
     Active Substance: CISPLATIN
     Indication: Neoplasm malignant
  14. VINORELBINE [Concomitant]
     Active Substance: VINORELBINE TARTRATE
     Indication: Neoplasm malignant

REACTIONS (1)
  - Acute kidney injury [Recovered/Resolved]

NARRATIVE: CASE EVENT DATE: 20221116
